FAERS Safety Report 17728451 (Version 1)
Quarter: 2020Q2

REPORT INFORMATION
  Report Type: Spontaneous
  Country: DE (occurrence: DE)
  Receive Date: 20200430
  Receipt Date: 20200430
  Transmission Date: 20200714
  Serious: Yes (Hospitalization)
  Sender: FDA-Public Use
  Company Number: DE-PFIZER INC-2020171998

PATIENT
  Age: 51 Year
  Sex: Female

DRUGS (5)
  1. PACLITAXEL. [Suspect]
     Active Substance: PACLITAXEL
     Dosage: NK MG
     Dates: end: 20200224
  2. EPIRUBICIN [Concomitant]
     Active Substance: EPIRUBICIN
     Dosage: NK MG
     Dates: end: 20191230
  3. TRASTUZUMAB. [Suspect]
     Active Substance: TRASTUZUMAB
     Dosage: NK MG
     Dates: end: 20200224
  4. CYCLOPHOSPHAMID [Concomitant]
     Active Substance: CYCLOPHOSPHAMIDE
     Dosage: NK MG
     Dates: end: 20191230
  5. PERTUZUMAB. [Suspect]
     Active Substance: PERTUZUMAB
     Dosage: NK MG
     Dates: end: 20200224

REACTIONS (3)
  - General physical health deterioration [Unknown]
  - Abdominal pain [Unknown]
  - Abdominal pain lower [Unknown]
